FAERS Safety Report 8875544 (Version 4)
Quarter: 2014Q1

REPORT INFORMATION
  Report Type: Spontaneous
  Country: US (occurrence: US)
  Receive Date: 20121023
  Receipt Date: 20140102
  Transmission Date: 20141002
  Serious: Yes (Hospitalization, Congenital Anomaly, Other)
  Sender: FDA-Public Use
  Company Number: US-JNJFOC-20121009832

PATIENT
  Sex: Male

DRUGS (3)
  1. TOPAMAX [Suspect]
     Indication: MIGRAINE
     Route: 064
     Dates: start: 2002, end: 2003
  2. TOPAMAX [Suspect]
     Indication: DEPRESSION
     Route: 064
     Dates: start: 2002, end: 2003
  3. EFFEXOR [Suspect]
     Indication: DEPRESSION
     Route: 064

REACTIONS (22)
  - Neurogenic bladder [Recovering/Resolving]
  - Gastrointestinal disorder [Unknown]
  - Anal stenosis [Unknown]
  - Congenital bladder anomaly [Unknown]
  - Tethered cord syndrome [Recovering/Resolving]
  - Congenital bladder anomaly [Unknown]
  - Congenital urethral anomaly [Unknown]
  - Congenital absence of vertebra [Unknown]
  - Bone development abnormal [Unknown]
  - Congenital urethral anomaly [Recovered/Resolved]
  - Congenital urethral anomaly [Recovered/Resolved]
  - Congenital ureteric anomaly [Recovered/Resolved]
  - Congenital anomaly [Unknown]
  - Congenital muscle absence [Unknown]
  - Spine malformation [Unknown]
  - Hypospadias [Unknown]
  - Rathke^s cleft cyst [Unknown]
  - Failure to thrive [Unknown]
  - Caudal regression syndrome [Unknown]
  - Diarrhoea [Unknown]
  - Emotional disorder [Unknown]
  - Adverse drug reaction [Unknown]
